FAERS Safety Report 8081493-8 (Version None)
Quarter: 2012Q1

REPORT INFORMATION
  Report Type: 
  Country: None (occurrence: None)
  Receive Date: 20120130
  Receipt Date: 20120120
  Transmission Date: 20120608
  Serious: Yes (Other)
  Sender: FDA-Public Use
  Company Number: PHHY2012CA005609

PATIENT
  Sex: Female

DRUGS (7)
  1. CRESTOR [Concomitant]
  2. RISPERIDONE [Concomitant]
  3. TORONTO INSULIN [Concomitant]
  4. TEMAZEPAM [Concomitant]
  5. DESMOPRESSIN ACETATE [Concomitant]
  6. CLOZARIL [Suspect]
     Indication: SCHIZOPHRENIA
     Dosage: 75 MG,HS
     Dates: start: 20080117
  7. CITALOPRAM [Concomitant]

REACTIONS (2)
  - COLON CANCER [None]
  - DIABETES MELLITUS [None]
